FAERS Safety Report 23935753 (Version 1)
Quarter: 2024Q2

REPORT INFORMATION
  Report Type: Spontaneous
  Country: US (occurrence: US)
  Receive Date: 20240604
  Receipt Date: 20240604
  Transmission Date: 20240715
  Serious: No
  Sender: FDA-Public Use
  Company Number: US-STERISCIENCE B.V.-2024-ST-000123

PATIENT
  Age: 31 Year
  Sex: Female

DRUGS (20)
  1. METOPROLOL [Suspect]
     Active Substance: METOPROLOL
     Indication: Product used for unknown indication
     Dosage: UNK
     Route: 065
  2. BUPIVACAINE [Suspect]
     Active Substance: BUPIVACAINE
     Indication: Anaesthesia
     Dosage: 0.75% (0.5 ML)
  3. DIGOXIN [Suspect]
     Active Substance: DIGOXIN
     Indication: Product used for unknown indication
     Dosage: UNK
     Route: 065
  4. TORSEMIDE [Suspect]
     Active Substance: TORSEMIDE
     Indication: Product used for unknown indication
     Dosage: UNK
     Route: 065
  5. BUMETANIDE [Suspect]
     Active Substance: BUMETANIDE
     Indication: Diuretic therapy
     Dosage: UNK
     Route: 042
  6. BUMETANIDE [Suspect]
     Active Substance: BUMETANIDE
     Indication: Cardiac failure
     Dosage: 0.25 MILLIGRAM, QH
  7. METOLAZONE [Suspect]
     Active Substance: METOLAZONE
     Indication: Diuretic therapy
     Dosage: UNK
     Route: 042
  8. METOLAZONE [Suspect]
     Active Substance: METOLAZONE
     Indication: Cardiac failure
  9. BETAMETHASONE [Suspect]
     Active Substance: BETAMETHASONE\BETAMETHASONE DIPROPIONATE
     Indication: Maternal therapy to enhance foetal lung maturity
     Dosage: UNK
     Route: 065
  10. MILRINONE [Suspect]
     Active Substance: MILRINONE
     Indication: Diuretic therapy
     Dosage: 0.3 MICROGRAM/KILOGRAM, QMINUTE
     Route: 042
  11. MILRINONE [Suspect]
     Active Substance: MILRINONE
     Indication: Cardiac failure
  12. MORPHINE [Suspect]
     Active Substance: MORPHINE
     Indication: Analgesic therapy
     Dosage: 150 MICROGRAM
  13. FENTANYL [Suspect]
     Active Substance: FENTANYL\FENTANYL CITRATE
     Indication: Analgesic therapy
     Dosage: 15 MICROGRAM
  14. LIDOCAINE [Suspect]
     Active Substance: LIDOCAINE
     Indication: Anaesthesia
     Dosage: 3 MILLILITER, TEST DOSE
     Route: 008
  15. LIDOCAINE [Suspect]
     Active Substance: LIDOCAINE
     Dosage: IN INCREAMENT OF 3-5ML UNTIL AN ANESTHETIC LEVEL OF T4 WAS ACHIVED
     Route: 008
  16. EPINEPHRINE [Suspect]
     Active Substance: EPINEPHRINE
     Indication: Haemodynamic instability
     Dosage: 15 MICROGRAM, TEST DOSE
     Route: 008
  17. EPINEPHRINE [Suspect]
     Active Substance: EPINEPHRINE
     Dosage: 5?G/ML IN INCREAMENT OF 3-5ML UNTIL AN ANESTHETIC LEVEL OF T4 WAS ACHIVED
     Route: 008
  18. NOREPINEPHRINE [Suspect]
     Active Substance: NOREPINEPHRINE\NOREPINEPHRINE BITARTRATE
     Indication: Haemodynamic instability
     Dosage: UNK
     Route: 065
  19. MAGNESIUM [Suspect]
     Active Substance: MAGNESIUM
     Indication: Supplementation therapy
     Dosage: UNK
     Route: 042
  20. POTASSIUM [Suspect]
     Active Substance: POTASSIUM
     Indication: Supplementation therapy
     Dosage: UNK
     Route: 065

REACTIONS (2)
  - Premature delivery [Unknown]
  - Maternal exposure during pregnancy [Unknown]
